FAERS Safety Report 22318904 (Version 2)
Quarter: 2023Q2

REPORT INFORMATION
  Report Type: Spontaneous
  Country: PL (occurrence: PL)
  Receive Date: 20230515
  Receipt Date: 20230516
  Transmission Date: 20230722
  Serious: Yes (Other)
  Sender: FDA-Public Use
  Company Number: PL-002147023-NVSC2023PL109048

PATIENT
  Sex: Male

DRUGS (1)
  1. ELTROMBOPAG [Suspect]
     Active Substance: ELTROMBOPAG
     Indication: Myelodysplastic syndrome
     Dosage: UNK
     Route: 065

REACTIONS (2)
  - Transformation to acute myeloid leukaemia [Unknown]
  - Product use in unapproved indication [Unknown]
